FAERS Safety Report 9918085 (Version 1)
Quarter: 2014Q1

REPORT INFORMATION
  Report Type: Spontaneous
  Country: US (occurrence: US)
  Receive Date: 20140223
  Receipt Date: 20140223
  Transmission Date: 20141002
  Serious: No
  Sender: FDA-Public Use
  Company Number: US-ALLERGAN-1316366US

PATIENT
  Sex: Male

DRUGS (2)
  1. FABIOR FOAM, 0.1% [Suspect]
     Indication: ACNE
     Dosage: HALF A GOLF BALL SIZE, ONCE A DAY
     Route: 061
  2. TAZORAC GEL 0.05% [Suspect]
     Indication: ACNE

REACTIONS (3)
  - Skin burning sensation [Unknown]
  - Erythema [Unknown]
  - Drug ineffective [Unknown]
